FAERS Safety Report 5179659-X (Version None)
Quarter: 2006Q4

REPORT INFORMATION
  Report Type: 
  Country: None (occurrence: None)
  Receive Date: 20061212
  Receipt Date: 20061127
  Transmission Date: 20070319
  Serious: Yes (Hospitalization)
  Sender: FDA-Public Use
  Company Number: 2006VX002369

PATIENT
  Age: 55 Year
  Sex: Female
  Weight: 65 kg

DRUGS (1)
  1. INTERFERON ALFACON-1 (INTERFERON ALFACON-1) [Suspect]
     Indication: HEPATITIS C
     Dosage: 9 UG;QD
     Dates: start: 20060606

REACTIONS (4)
  - INTERVERTEBRAL DISC PROTRUSION [None]
  - NERVE ROOT COMPRESSION [None]
  - PARESIS [None]
  - REFUSAL OF TREATMENT BY PATIENT [None]
